FAERS Safety Report 4305614-5 (Version None)
Quarter: 2004Q1

REPORT INFORMATION
  Report Type: 
  Country: None (occurrence: None)
  Receive Date: 20040226
  Receipt Date: 20031212
  Transmission Date: 20041129
  Serious: Yes (Other)
  Sender: FDA-Public Use
  Company Number: US-BRISTOL-MYERS SQUIBB COMPANY-12457354

PATIENT
  Age: 25 Year
  Sex: Female

DRUGS (3)
  1. ABILIFY [Suspect]
     Indication: MAJOR DEPRESSION
     Route: 048
  2. ABILIFY [Suspect]
     Indication: PSYCHOTIC DISORDER
     Route: 048
  3. PROZAC [Concomitant]

REACTIONS (7)
  - DEHYDRATION [None]
  - DYSKINESIA [None]
  - EYE ROLLING [None]
  - HALLUCINATION, AUDITORY [None]
  - MENTAL DISORDER [None]
  - PREGNANCY [None]
  - VOMITING [None]
